FAERS Safety Report 8862983 (Version 1)
Quarter: 2012Q4

REPORT INFORMATION
  Report Type: 
  Country: US (occurrence: US)
  Receive Date: 20121026
  Receipt Date: 20121026
  Transmission Date: 20130627
  Serious: No
  Sender: FDA-Public Use
  Company Number: US-ALLERGAN-1203769US

PATIENT
  Age: 81 Year
  Sex: Female

DRUGS (3)
  1. ALPHAGAN P [Suspect]
     Indication: INCREASED INTRAOCULAR PRESSURE
     Dosage: 2 Gtt, bid
     Route: 047
     Dates: start: 201201, end: 20120301
  2. ALPHAGAN P [Suspect]
     Dosage: 1 Gtt, bid
     Route: 047
     Dates: start: 2006, end: 201201
  3. BETIMOL [Concomitant]
     Indication: IOP INCREASED
     Dosage: 1 Gtt, bid
     Route: 047

REACTIONS (2)
  - Eye pruritus [Unknown]
  - Drug ineffective [Unknown]
